FAERS Safety Report 10187549 (Version 1)
Quarter: 2014Q2

REPORT INFORMATION
  Report Type: Spontaneous
  Country: US (occurrence: US)
  Receive Date: 20140522
  Receipt Date: 20140522
  Transmission Date: 20141212
  Serious: No
  Sender: FDA-Public Use
  Company Number: US-SANOFI-AVENTIS-2013SA081281

PATIENT
  Age: 64 Year
  Sex: Female

DRUGS (4)
  1. LANTUS [Suspect]
     Route: 051
     Dates: start: 20130802, end: 20130804
  2. GLIPIZIDE [Concomitant]
     Indication: DIABETES MELLITUS
     Dates: start: 201212
  3. CHLOROTHIAZIDE [Concomitant]
     Indication: HYPERTENSION
     Dates: start: 201212
  4. LISINOPRIL [Concomitant]
     Indication: HYPERTENSION
     Dates: start: 201212

REACTIONS (2)
  - Headache [Recovered/Resolved]
  - Dizziness [Recovered/Resolved]
